FAERS Safety Report 7992224-1 (Version None)
Quarter: 2011Q4

REPORT INFORMATION
  Report Type: 
  Country: None (occurrence: None)
  Receive Date: 20111219
  Receipt Date: 20111208
  Transmission Date: 20120403
  Serious: Yes (Hospitalization)
  Sender: FDA-Public Use
  Company Number: US-ELI_LILLY_AND_COMPANY-US201112002813

PATIENT
  Sex: Female

DRUGS (4)
  1. ZYPREXA [Suspect]
     Dosage: 10 MG, QD
  2. ZYPREXA [Suspect]
     Dosage: 5 MG, QD
  3. ATIVAN [Concomitant]
  4. ZYPREXA [Suspect]
     Indication: BIPOLAR DISORDER
     Dosage: 15 MG, QD
     Dates: start: 19890101

REACTIONS (6)
  - ABNORMAL BEHAVIOUR [None]
  - HALLUCINATION [None]
  - PSYCHOTIC DISORDER [None]
  - HALLUCINATION, AUDITORY [None]
  - ANXIETY [None]
  - UNDERDOSE [None]
